FAERS Safety Report 22728706 (Version 4)
Quarter: 2023Q4

REPORT INFORMATION
  Report Type: Spontaneous
  Country: CA (occurrence: CA)
  Receive Date: 20230720
  Receipt Date: 20231117
  Transmission Date: 20240109
  Serious: Yes (Other)
  Sender: FDA-Public Use
  Company Number: CA-PFIZER INC-202300252635

PATIENT
  Age: 49 Year
  Sex: Male

DRUGS (5)
  1. ABRILADA [Suspect]
     Active Substance: ADALIMUMAB-AFZB
     Indication: Crohn^s disease
     Dosage: 1 DF, EVERY 2 WEEKS (WEEK 0 160MG, WEEK 2 80MG, THEN 40 MG EVERY 2 WEEKS STARTING WEEK 4)
     Route: 058
     Dates: start: 20230317
  2. ABRILADA [Suspect]
     Active Substance: ADALIMUMAB-AFZB
     Dosage: 40 MG, WEEKLY
     Route: 058
     Dates: start: 2023
  3. CALCIUM [Concomitant]
     Active Substance: CALCIUM
     Dosage: 1 DF
  4. PREDNISONE [Concomitant]
     Active Substance: PREDNISONE
     Dosage: 20 MG
  5. CHOLECALCIFEROL [Concomitant]
     Active Substance: CHOLECALCIFEROL
     Dosage: 1 DF

REACTIONS (6)
  - Haematochezia [Unknown]
  - Hepatitis [Not Recovered/Not Resolved]
  - Off label use [Unknown]
  - Mucous stools [Unknown]
  - Condition aggravated [Recovered/Resolved]
  - Fatigue [Unknown]

NARRATIVE: CASE EVENT DATE: 20230101
